FAERS Safety Report 13113070 (Version 3)
Quarter: 2017Q1

REPORT INFORMATION
  Report Type: Spontaneous
  Country: US (occurrence: US)
  Receive Date: 20170113
  Receipt Date: 20170216
  Transmission Date: 20170428
  Serious: Yes (Death, Hospitalization, Other)
  Sender: FDA-Public Use
  Company Number: US-SAOL THERAPEUTICS-2017SAO00029

PATIENT
  Sex: Female

DRUGS (2)
  1. BACLOFEN. [Suspect]
     Active Substance: BACLOFEN
     Indication: CEREBROVASCULAR ACCIDENT
     Dosage: 30.7 ?G, \DAY
     Route: 037
     Dates: start: 2009
  2. MORPHINE [Suspect]
     Active Substance: MORPHINE
     Dosage: 30.7 MG, \DAY
     Route: 037

REACTIONS (6)
  - Malaise [Unknown]
  - Cystitis [Unknown]
  - Atrial fibrillation [Unknown]
  - Pain [Not Recovered/Not Resolved]
  - Cerebrovascular accident [Fatal]
  - Bladder pain [Unknown]

NARRATIVE: CASE EVENT DATE: 2011
